FAERS Safety Report 12949545 (Version 1)
Quarter: 2016Q4

REPORT INFORMATION
  Report Type: Spontaneous
  Country: US (occurrence: US)
  Receive Date: 20161117
  Receipt Date: 20161117
  Transmission Date: 20170207
  Serious: No
  Sender: FDA-Public Use
  Company Number: US-JNJFOC-20161101072

PATIENT
  Sex: Female

DRUGS (2)
  1. SUDAFED 12 HOUR [Suspect]
     Active Substance: PSEUDOEPHEDRINE HYDROCHLORIDE
     Route: 065
  2. SUDAFED 12 HOUR [Suspect]
     Active Substance: PSEUDOEPHEDRINE HYDROCHLORIDE
     Indication: SINUSITIS
     Route: 065

REACTIONS (4)
  - Therapeutic response unexpected [Unknown]
  - Product use issue [Unknown]
  - Exposure during pregnancy [Unknown]
  - Off label use [Unknown]
